FAERS Safety Report 19079448 (Version 1)
Quarter: 2021Q1

REPORT INFORMATION
  Report Type: Report from Study
  Country: US (occurrence: US)
  Receive Date: 20210331
  Receipt Date: 20210331
  Transmission Date: 20210420
  Serious: Yes (Other)
  Sender: FDA-Public Use
  Company Number: US-BAYER-2021-111182

PATIENT
  Age: 57 Year
  Sex: Female

DRUGS (1)
  1. GADOBUTROL. [Suspect]
     Active Substance: GADOBUTROL
     Indication: MAGNETIC RESONANCE IMAGING
     Dosage: UNK UNK, ONCE

REACTIONS (10)
  - Burning sensation [None]
  - Myoclonus [None]
  - Pain in extremity [None]
  - Gadolinium deposition disease [None]
  - Hypoaesthesia oral [None]
  - Headache [None]
  - Paraesthesia [None]
  - Allodynia [None]
  - Muscle spasms [None]
  - Fatigue [None]
